FAERS Safety Report 8159434-4 (Version None)
Quarter: 2012Q1

REPORT INFORMATION
  Report Type: 
  Country: None (occurrence: None)
  Receive Date: 20120223
  Receipt Date: 20120216
  Transmission Date: 20120608
  Serious: Yes (Hospitalization, Other)
  Sender: FDA-Public Use
  Company Number: US-BRISTOL-MYERS SQUIBB COMPANY-16362758

PATIENT
  Age: 79 Year
  Sex: Female
  Weight: 76 kg

DRUGS (17)
  1. CLONIDINE [Concomitant]
  2. ZOSYN [Concomitant]
  3. JANUVIA [Concomitant]
  4. CIPROFLOXACIN [Concomitant]
  5. NEUPOGEN [Suspect]
     Indication: MALIGNANT MELANOMA
     Dosage: D1-D14, 250MCG/ML VIALS
     Route: 058
     Dates: start: 20111020, end: 20120118
  6. METOPROLOL [Concomitant]
  7. VERSED [Concomitant]
  8. FAMOTIDINE [Concomitant]
  9. DIPHENHYDRAMINE HCL [Concomitant]
  10. VANCOMYCIN [Concomitant]
  11. CEFTRIAXONE [Concomitant]
  12. IPILIMUMAB [Suspect]
     Indication: MALIGNANT MELANOMA
     Dosage: 1 DF = 5MCG/ML,40ML VIALS
     Route: 042
     Dates: start: 20111020, end: 20120104
  13. LISINOPRIL [Concomitant]
  14. VALSARTAN [Concomitant]
  15. HUMALOG [Concomitant]
  16. AZITHROMYCIN [Concomitant]
  17. FENTANYL [Concomitant]

REACTIONS (9)
  - DIARRHOEA [None]
  - ENDOCRINE DISORDER [None]
  - HYPOGLYCAEMIA [None]
  - SEPSIS [None]
  - RENAL FAILURE ACUTE [None]
  - HYPONATRAEMIA [None]
  - HYPOKALAEMIA [None]
  - ASTHENIA [None]
  - PNEUMONIA [None]
